FAERS Safety Report 10532219 (Version 2)
Quarter: 2014Q4

REPORT INFORMATION
  Report Type: Spontaneous
  Country: US (occurrence: US)
  Receive Date: 20141021
  Receipt Date: 20141029
  Transmission Date: 20150529
  Serious: Yes (Death)
  Sender: FDA-Public Use
  Company Number: US-PFIZER INC-2014284455

PATIENT
  Age: 27 Year
  Sex: Female

DRUGS (4)
  1. TORISEL [Suspect]
     Active Substance: TEMSIROLIMUS
     Indication: BRAIN NEOPLASM MALIGNANT
     Dosage: 25 MG, UNK (OVER 1 HOUR)
     Route: 042
  2. BENADRYL [Concomitant]
     Active Substance: DIPHENHYDRAMINE HYDROCHLORIDE
     Dosage: 25 MG, UNK (OVER 30 MINUTES)
     Route: 042
  3. BENADRYL [Concomitant]
     Active Substance: DIPHENHYDRAMINE HYDROCHLORIDE
     Dosage: 25 MG, UNK (OVER 20 MINUTES)
     Route: 042
  4. TORISEL [Suspect]
     Active Substance: TEMSIROLIMUS
     Dosage: 20 MG, UNK (OVER 1 HOUR)
     Route: 042

REACTIONS (7)
  - Brain neoplasm malignant [Fatal]
  - Headache [Recovered/Resolved]
  - Product use issue [Unknown]
  - Fall [Unknown]
  - Joint injury [Unknown]
  - Disease progression [Fatal]
  - Rash macular [Recovered/Resolved]
